FAERS Safety Report 8255383 (Version 3)
Quarter: 2013Q1

REPORT INFORMATION
  Report Type: Report from Study
  Country: DE (occurrence: DE)
  Receive Date: 20111118
  Receipt Date: 20130206
  Transmission Date: 20140127
  Serious: Yes (Death, Hospitalization, Other)
  Sender: FDA-Public Use
  Company Number: PHHY2011DE100991

PATIENT
  Age: 52 Year
  Sex: Male
  Weight: 95 kg

DRUGS (5)
  1. AFINITOR [Suspect]
     Indication: RENAL CELL CARCINOMA
     Dosage: 10 MG, QD
     Route: 048
     Dates: start: 20110830, end: 20111026
  2. AFINITOR [Suspect]
     Dosage: 10 MG, QD
     Route: 048
     Dates: end: 20120208
  3. INSULIN [Concomitant]
     Indication: DIABETES MELLITUS
  4. HYDROCORTISON [Concomitant]
     Dosage: 20 MG, UNK
  5. ASTONIN-H [Concomitant]
     Dosage: 0.1 MG, UNK

REACTIONS (10)
  - Death [Fatal]
  - Metastases to central nervous system [Unknown]
  - Convulsion [Recovered/Resolved]
  - Pneumonia [Recovered/Resolved]
  - Proteinuria [Not Recovered/Not Resolved]
  - Mucosal inflammation [Not Recovered/Not Resolved]
  - Thirst [Recovered/Resolved]
  - Rash [Recovered/Resolved]
  - Acne [Recovered/Resolved]
  - Diarrhoea [Recovered/Resolved]
